FAERS Safety Report 5892563-4 (Version None)
Quarter: 2008Q3

REPORT INFORMATION
  Report Type: 
  Country: None (occurrence: None)
  Receive Date: 20080923
  Receipt Date: 20080918
  Transmission Date: 20090109
  Serious: Yes (Other)
  Sender: FDA-Public Use
  Company Number: US-BAYER-200824426NA

PATIENT

DRUGS (1)
  1. MAGNEVIST [Suspect]

REACTIONS (2)
  - OROPHARYNGEAL DISCOMFORT [None]
  - URTICARIA [None]
